FAERS Safety Report 4416943-9 (Version None)
Quarter: 2004Q3

REPORT INFORMATION
  Report Type: 
  Country: None (occurrence: None)
  Receive Date: 20040802
  Receipt Date: 20040720
  Transmission Date: 20050211
  Serious: Yes (Disabling)
  Sender: FDA-Public Use
  Company Number: HQWYE294421JUL04

PATIENT
  Age: 84 Year
  Sex: Female
  Weight: 74.91 kg

DRUGS (1)
  1. CORDARONE [Suspect]
     Indication: ATRIAL FIBRILLATION
     Dosage: 300 MG X 5 MONTHS, 100 MG X 6 MONTHS
     Dates: start: 20020801, end: 20030716

REACTIONS (13)
  - ANXIETY [None]
  - ASTHENIA [None]
  - BALANCE DISORDER [None]
  - BLOOD THYROID STIMULATING HORMONE INCREASED [None]
  - CONFUSIONAL STATE [None]
  - CONSTIPATION [None]
  - DROOLING [None]
  - HALO VISION [None]
  - NEUROPATHY PERIPHERAL [None]
  - PAIN IN EXTREMITY [None]
  - SLEEP DISORDER [None]
  - VISUAL ACUITY REDUCED [None]
  - WEIGHT INCREASED [None]
